FAERS Safety Report 9691704 (Version 2)
Quarter: 2013Q4

REPORT INFORMATION
  Report Type: Other
  Country: US (occurrence: US)
  Receive Date: 20131115
  Receipt Date: 20131115
  Transmission Date: 20140711
  Serious: Yes (Life-Threatening, Other)
  Sender: FDA-Public Use
  Company Number: US-ACORDA-ACO_100103_2013

PATIENT
  Age: 52 Year
  Sex: Female
  Weight: 57.6 kg

DRUGS (7)
  1. AMPYRA [Suspect]
     Indication: PRODUCT USED FOR UNKNOWN INDICATION
     Dosage: 10 MG, Q 12 HRS
     Route: 048
  2. TECFIDERA [Suspect]
     Indication: MULTIPLE SCLEROSIS
     Dosage: UNK,UNK
     Route: 065
     Dates: start: 20131025
  3. CYMBALTA [Concomitant]
     Indication: PRODUCT USED FOR UNKNOWN INDICATION
     Dosage: 20 MG, UNK
     Route: 065
  4. IRON [Concomitant]
     Indication: PRODUCT USED FOR UNKNOWN INDICATION
     Dosage: 18 MG, UNK
     Route: 065
  5. VITAMIN D [Concomitant]
     Indication: PRODUCT USED FOR UNKNOWN INDICATION
     Dosage: 1000 IU, UNK
     Route: 065
  6. VITAMIN E [Concomitant]
     Indication: PRODUCT USED FOR UNKNOWN INDICATION
     Dosage: 1000 IU, UNK
     Route: 065
  7. APAP WITH CODEINE [Concomitant]
     Indication: PRODUCT USED FOR UNKNOWN INDICATION
     Dosage: 15-300 MG, UNK
     Route: 065

REACTIONS (5)
  - Dyspnoea [Unknown]
  - Choking [Unknown]
  - Dysphonia [Unknown]
  - Food intolerance [Unknown]
  - Oropharyngeal pain [Unknown]
